APPROVED DRUG PRODUCT: EFINACONAZOLE
Active Ingredient: EFINACONAZOLE
Strength: 10%
Dosage Form/Route: SOLUTION;TOPICAL
Application: A211827 | Product #001 | TE Code: AB
Applicant: TEVA PHARMACEUTICALS USA INC
Approved: Dec 16, 2020 | RLD: No | RS: No | Type: RX